FAERS Safety Report 4319777-9 (Version None)
Quarter: 2004Q1

REPORT INFORMATION
  Report Type: 
  Country: None (occurrence: None)
  Receive Date: 20040319
  Receipt Date: 20040316
  Transmission Date: 20041129
  Serious: Yes (Hospitalization)
  Sender: FDA-Public Use
  Company Number: FR-GLAXOSMITHKLINE-B0326753A

PATIENT
  Age: 68 Year
  Sex: Female
  Weight: 74 kg

DRUGS (6)
  1. AUGMENTIN [Suspect]
     Indication: OSTEONECROSIS
     Dosage: 6G PER DAY
     Route: 048
     Dates: start: 20040126, end: 20040201
  2. ALDACTAZINE [Concomitant]
     Route: 048
     Dates: end: 20040202
  3. ALDOMET [Concomitant]
     Route: 048
     Dates: end: 20040202
  4. DIANTALVIC [Concomitant]
     Dosage: 4UNIT PER DAY
     Route: 048
     Dates: start: 20040127, end: 20040129
  5. DIAMICRON [Concomitant]
     Dosage: 3UNIT PER DAY
     Route: 048
     Dates: end: 20040126
  6. GLUCOPHAGE [Concomitant]
     Dosage: 3UNIT PER DAY
     Route: 048
     Dates: end: 20040126

REACTIONS (3)
  - ALANINE AMINOTRANSFERASE INCREASED [None]
  - ASPARTATE AMINOTRANSFERASE INCREASED [None]
  - GAMMA-GLUTAMYLTRANSFERASE INCREASED [None]
